FAERS Safety Report 11825411 (Version 3)
Quarter: 2015Q4

REPORT INFORMATION
  Report Type: Spontaneous
  Country: JP (occurrence: JP)
  Receive Date: 20151211
  Receipt Date: 20151216
  Transmission Date: 20160305
  Serious: Yes (Death, Hospitalization)
  Sender: FDA-Public Use
  Company Number: JP-009507513-1512JPN003226

PATIENT
  Age: 69 Year
  Sex: Male

DRUGS (4)
  1. CUBICIN [Suspect]
     Active Substance: DAPTOMYCIN
     Indication: SEPSIS
     Dosage: DAILY DOSE UNKNOWN
     Route: 041
     Dates: start: 20151202, end: 20151202
  2. SOLU-MEDROL [Concomitant]
     Active Substance: METHYLPREDNISOLONE SODIUM SUCCINATE
     Dosage: DAILY DOSE UNKNOWN
     Route: 051
  3. FUNGUARD [Concomitant]
     Active Substance: MICAFUNGIN SODIUM
     Dosage: DAILY DOSE UNKNOWN
     Route: 051
  4. ZOSYN [Concomitant]
     Active Substance: PIPERACILLIN SODIUM\TAZOBACTAM SODIUM
     Dosage: DAILY DOSE UNKNOWN
     Route: 051

REACTIONS (2)
  - Blood glucose increased [Fatal]
  - Tachycardia [Fatal]

NARRATIVE: CASE EVENT DATE: 20151202
